FAERS Safety Report 7047992-2 (Version None)
Quarter: 2010Q4

REPORT INFORMATION
  Report Type: 
  Country: None (occurrence: None)
  Receive Date: 20101015
  Receipt Date: 20101007
  Transmission Date: 20110411
  Serious: Yes (Congenital Anomaly)
  Sender: FDA-Public Use
  Company Number: A0873525A

PATIENT
  Sex: Female

DRUGS (2)
  1. PAXIL [Suspect]
     Indication: PANIC DISORDER
     Dosage: 20MG PER DAY
     Dates: start: 20030805, end: 20050128
  2. XANAX [Concomitant]

REACTIONS (6)
  - CARDIAC MURMUR [None]
  - CONGENITAL HIP DEFORMITY [None]
  - COORDINATION ABNORMAL [None]
  - DRUG EXPOSURE DURING PREGNANCY [None]
  - ECG SIGNS OF VENTRICULAR HYPERTROPHY [None]
  - SPEECH DISORDER DEVELOPMENTAL [None]
